FAERS Safety Report 5525331-3 (Version None)
Quarter: 2007Q4

REPORT INFORMATION
  Report Type: 
  Country: None (occurrence: None)
  Receive Date: 20071120
  Receipt Date: 20071108
  Transmission Date: 20080405
  Serious: Yes (Disabling)
  Sender: FDA-Public Use
  Company Number: M7002-00627-SPO-US

PATIENT
  Age: 48 Year
  Sex: Male

DRUGS (2)
  1. ONTAK [Suspect]
     Indication: CHRONIC LYMPHOCYTIC LEUKAEMIA
     Dosage: 18 MCG, INTRAVENOUS INFUSION
     Dates: start: 20040101, end: 20040101
  2. NARCOTICS [Concomitant]

REACTIONS (1)
  - POLYMYOSITIS [None]
